FAERS Safety Report 10793673 (Version 1)
Quarter: 2015Q1

REPORT INFORMATION
  Report Type: Report from Study
  Country: BR (occurrence: BR)
  Receive Date: 20150213
  Receipt Date: 20150213
  Transmission Date: 20150721
  Serious: Yes (Death)
  Sender: FDA-Public Use
  Company Number: BR-ABBVIE-15K-020-1346145-00

PATIENT
  Sex: Female
  Weight: 60 kg

DRUGS (1)
  1. HUMIRA [Suspect]
     Active Substance: ADALIMUMAB
     Indication: RHEUMATOID ARTHRITIS
     Route: 058
     Dates: start: 20130815

REACTIONS (5)
  - Unevaluable event [Fatal]
  - Disseminated intravascular coagulation [Fatal]
  - Cardiac failure [Fatal]
  - Pulmonary embolism [Fatal]
  - Cardiac arrest [Fatal]
